FAERS Safety Report 6197659-8 (Version None)
Quarter: 2009Q2

REPORT INFORMATION
  Report Type: 
  Country: None (occurrence: None)
  Receive Date: 20090518
  Receipt Date: 20090402
  Transmission Date: 20091009
  Serious: Yes (Other)
  Sender: FDA-Public Use
  Company Number: 2009001279

PATIENT
  Age: 33 Year
  Sex: Female
  Weight: 66.2252 kg

DRUGS (12)
  1. AMRIX [Suspect]
     Indication: MIGRAINE
     Dosage: 15 MG, ONE AT HS, ORAL, 15 MG, ONE AT HS), ORAL, 15 MG, ONE AT HS), ORAL
     Route: 048
     Dates: start: 20081220, end: 20090204
  2. AMRIX [Suspect]
     Indication: MIGRAINE
     Dosage: 15 MG, ONE AT HS, ORAL, 15 MG, ONE AT HS), ORAL, 15 MG, ONE AT HS), ORAL
     Route: 048
     Dates: start: 20090214
  3. AMRIX [Suspect]
     Indication: MIGRAINE
     Dosage: 15 MG, ONE AT HS, ORAL, 15 MG, ONE AT HS), ORAL, 15 MG, ONE AT HS), ORAL
     Route: 048
     Dates: start: 20090501
  4. HYOSCYAMINE (HYOSCYAMINE) [Suspect]
     Dosage: 0.75 MG (0.375 MG, 2 IN 1 D)
     Dates: start: 20081225
  5. BENTYL [Suspect]
  6. ZONEGRAN [Concomitant]
  7. LEVOXYL [Concomitant]
  8. SPIRONOLACTONE [Concomitant]
  9. PROTONIX [Concomitant]
  10. MULTIVITAMIN [Concomitant]
  11. DOCUSATE SODIUM (DOCUSATE SODIUM) [Concomitant]
  12. MIRALAX [Concomitant]

REACTIONS (2)
  - RETINAL OEDEMA [None]
  - VISION BLURRED [None]
